FAERS Safety Report 8444639-5 (Version None)
Quarter: 2012Q2

REPORT INFORMATION
  Report Type: 
  Country: None (occurrence: None)
  Receive Date: 20120618
  Receipt Date: 20120612
  Transmission Date: 20120825
  Serious: Yes (Other)
  Sender: FDA-Public Use
  Company Number: US-PFIZER INC-2012111393

PATIENT
  Sex: Female
  Weight: 90.8 kg

DRUGS (5)
  1. ACCUPRIL [Suspect]
     Dosage: 10 MG, DAILY
     Dates: end: 20120405
  2. CLONIDINE [Concomitant]
     Indication: HYPERTENSION
     Dosage: 2 MG, 2X/DAY
     Dates: start: 20120302
  3. ACCUPRIL [Suspect]
     Indication: HYPERTENSION
     Dosage: 5 MG, DAILY
     Dates: start: 20120323
  4. CLONIDINE [Concomitant]
     Indication: HEADACHE
  5. NORVASC [Suspect]
     Indication: HYPERTENSION
     Dosage: 5 MG, DAILY
     Dates: start: 20120301, end: 20120320

REACTIONS (13)
  - MALAISE [None]
  - BACK PAIN [None]
  - DIZZINESS [None]
  - PAIN [None]
  - VOMITING [None]
  - OEDEMA PERIPHERAL [None]
  - LETHARGY [None]
  - COUGH [None]
  - HYPERSENSITIVITY [None]
  - RASH GENERALISED [None]
  - SWELLING FACE [None]
  - DRUG INEFFECTIVE [None]
  - CHOKING [None]
